FAERS Safety Report 8166534-1 (Version None)
Quarter: 2012Q1

REPORT INFORMATION
  Report Type: 
  Country: None (occurrence: None)
  Receive Date: 20120227
  Receipt Date: 20110607
  Transmission Date: 20120608
  Serious: Yes (Death)
  Sender: FDA-Public Use
  Company Number: US-BRISTOL-MYERS SQUIBB COMPANY-15488547

PATIENT
  Age: 59 Year
  Sex: Male
  Weight: 113 kg

DRUGS (29)
  1. PACLITAXEL [Suspect]
     Indication: LUNG NEOPLASM MALIGNANT
     Dosage: OVER 1-3 HOURS ON DAY 1OF 21 DAY CYCLE
     Route: 042
     Dates: start: 20110111
  2. NORVASC [Concomitant]
     Indication: BLOOD PRESSURE
  3. COZAAR [Concomitant]
     Indication: BLOOD PRESSURE
  4. MULTI-VITAMIN [Concomitant]
  5. ERBITUX [Suspect]
     Indication: LUNG NEOPLASM MALIGNANT
     Dosage: 1 OF 1 CYCLE,250 MG/M2 WEEKLY ROUTE: IV PORT
     Route: 042
     Dates: start: 20110111
  6. BENADRYL [Concomitant]
     Indication: PREMEDICATION
  7. ADVAIR DISKUS 100/50 [Concomitant]
     Indication: CHRONIC OBSTRUCTIVE PULMONARY DISEASE
     Dosage: 1 DF =500/50 UNIT NOT MENTIONED
  8. ALBUTEROL [Concomitant]
  9. PEPCID [Concomitant]
     Indication: PREMEDICATION
  10. DEXAMETHASONE [Concomitant]
     Indication: PREMEDICATION
  11. XANAX [Concomitant]
     Indication: NERVOUSNESS
  12. CHONDROITIN [Concomitant]
     Indication: ARTHRITIS
  13. NITROGLYCERIN [Concomitant]
  14. NEXIUM [Concomitant]
     Indication: GASTROOESOPHAGEAL REFLUX DISEASE
  15. ALOXI [Concomitant]
     Indication: PREMEDICATION
  16. PLAVIX [Concomitant]
  17. COMBIVENT [Concomitant]
     Indication: CHRONIC OBSTRUCTIVE PULMONARY DISEASE
     Dosage: QD
  18. MULTIPLE VITAMIN [Concomitant]
  19. PROPOFOL [Concomitant]
  20. SODIUM CHLORIDE [Concomitant]
  21. ASPIRIN [Concomitant]
  22. SPIRIVA [Concomitant]
     Indication: CHRONIC OBSTRUCTIVE PULMONARY DISEASE
  23. CARBOPLATIN [Suspect]
     Indication: LUNG NEOPLASM MALIGNANT
     Dosage: 1DF:6AUC
     Route: 042
     Dates: start: 20110111
  24. GLUCOSAMINE [Concomitant]
     Indication: ARTHRITIS
  25. LOPRESSOR [Concomitant]
     Indication: BLOOD PRESSURE
  26. ZOCOR [Concomitant]
  27. MORPHINE SULFATE [Concomitant]
     Indication: PAIN
     Dosage: TAB
  28. NOREPINEPHRINE BITARTRATE [Concomitant]
  29. PROTONIX [Concomitant]

REACTIONS (3)
  - MULTI-ORGAN FAILURE [None]
  - ANAPHYLACTIC REACTION [None]
  - CARDIAC ARREST [None]
